FAERS Safety Report 15270224 (Version 1)
Quarter: 2018Q3

REPORT INFORMATION
  Report Type: Spontaneous
  Country: CA (occurrence: CA)
  Receive Date: 20180813
  Receipt Date: 20180813
  Transmission Date: 20181010
  Serious: Yes (Disabling)
  Sender: FDA-Public Use
  Company Number: CA-BAYER-2018-145856

PATIENT
  Age: 45 Year
  Sex: Female

DRUGS (1)
  1. MIRENA [Suspect]
     Active Substance: LEVONORGESTREL
     Indication: CONTRACEPTION
     Dosage: 20 MCG/24HR, CONT
     Route: 015

REACTIONS (13)
  - Feeling drunk [Unknown]
  - Loss of libido [Unknown]
  - Nausea [Unknown]
  - Vision blurred [Unknown]
  - Device dislocation [Unknown]
  - Dizziness [Unknown]
  - Affect lability [Unknown]
  - Abdominal pain [Unknown]
  - Anxiety [Unknown]
  - Crying [None]
  - Depression [Unknown]
  - Fatigue [Unknown]
  - Headache [Unknown]
